FAERS Safety Report 18111802 (Version 5)
Quarter: 2021Q1

REPORT INFORMATION
  Report Type: Report from Study
  Country: IT (occurrence: IT)
  Receive Date: 20200804
  Receipt Date: 20210119
  Transmission Date: 20210419
  Serious: Yes (Life-Threatening, Hospitalization, Other)
  Sender: FDA-Public Use
  Company Number: IT-BRISTOL-MYERS SQUIBB COMPANY-BMS-2020-055459

PATIENT
  Age: 73 Year
  Sex: Male
  Weight: 110 kg

DRUGS (7)
  1. LEVOTIROXINA [LEVOTHYROXINE] [Concomitant]
     Dosage: 150 MILLIGRAM
     Route: 048
     Dates: start: 20200409
  2. NIVOLUMAB [Suspect]
     Active Substance: NIVOLUMAB
     Indication: RENAL CELL CARCINOMA
     Dosage: 50 MILLILITER
     Route: 042
     Dates: start: 20200110, end: 20200623
  3. LEVOTIROXINA [LEVOTHYROXINE] [Concomitant]
     Indication: HYPOTHYROIDISM
     Dosage: 1 DOSAGE FORM (1 DF =75 UNITS NOT SPECIFIED)
     Route: 048
     Dates: start: 20200311, end: 20200324
  4. ALLOPURINOL. [Concomitant]
     Active Substance: ALLOPURINOL
     Indication: HYPERURICAEMIA
     Dosage: 300 MILLIGRAM
     Route: 048
     Dates: start: 20200225
  5. ZYLORIC [Concomitant]
     Active Substance: ALLOPURINOL
     Indication: HYPERURICAEMIA
     Dosage: 300 MILLIGRAM
     Route: 048
     Dates: start: 20200110
  6. IPILIMUMAB [Suspect]
     Active Substance: IPILIMUMAB
     Indication: RENAL CELL CARCINOMA
     Dosage: 40 MILLILITER
     Route: 042
     Dates: start: 20200110, end: 20200526
  7. LEVOTIROXINA [LEVOTHYROXINE] [Concomitant]
     Dosage: 1 DOSAGE FORM (1 DF=125 UNITS NOT SPECIFIED)
     Route: 048
     Dates: start: 20200325, end: 20200408

REACTIONS (1)
  - Colitis ischaemic [Recovered/Resolved]

NARRATIVE: CASE EVENT DATE: 20200625
